FAERS Safety Report 7557154-8 (Version None)
Quarter: 2011Q2

REPORT INFORMATION
  Report Type: 
  Country: None (occurrence: None)
  Receive Date: 20110616
  Receipt Date: 20110616
  Transmission Date: 20111010
  Serious: Yes (Other)
  Sender: FDA-Public Use
  Company Number: None

PATIENT
  Sex: Female
  Weight: 118.3888 kg

DRUGS (1)
  1. SAPHRIS [Suspect]
     Dosage: 5MG QAM SL
     Route: 060
     Dates: start: 20110505, end: 20110512

REACTIONS (4)
  - DIZZINESS [None]
  - VIITH NERVE PARALYSIS [None]
  - SEDATION [None]
  - BLOOD GLUCOSE INCREASED [None]
